FAERS Safety Report 5868213-X (Version None)
Quarter: 2008Q3

REPORT INFORMATION
  Report Type: 
  Country: None (occurrence: None)
  Receive Date: 20080902
  Receipt Date: 20080825
  Transmission Date: 20090109
  Serious: Yes (Hospitalization)
  Sender: FDA-Public Use
  Company Number: FR-ABBOTT-08P-056-0472356-00

PATIENT
  Sex: Male

DRUGS (7)
  1. CLARITHROMYCIN [Suspect]
     Indication: MYCOBACTERIAL INFECTION
     Route: 048
     Dates: start: 20080415, end: 20080521
  2. RIFAMPICIN [Suspect]
     Indication: MYCOBACTERIAL INFECTION
     Route: 048
     Dates: start: 20080415, end: 20080521
  3. ETHAMBUTOL HCL [Suspect]
     Indication: MYCOBACTERIAL INFECTION
     Route: 048
     Dates: start: 20080415, end: 20080521
  4. AMIKACIN [Suspect]
     Indication: PSEUDOMONAS INFECTION
     Route: 042
     Dates: start: 20080517, end: 20080518
  5. AMIKACIN [Suspect]
     Indication: HYPERTHERMIA
     Dates: start: 20080101, end: 20080101
  6. PIPERACILLIN AND TAZOBACTAM [Suspect]
     Indication: PSEUDOMONAS INFECTION
     Route: 042
     Dates: start: 20080517, end: 20080518
  7. PIPERACILLIN AND TAZOBACTAM [Suspect]
     Indication: HYPERTHERMIA
     Dates: start: 20080101, end: 20080101

REACTIONS (6)
  - DRUG ERUPTION [None]
  - EOSINOPHILIA [None]
  - HYPERTHERMIA [None]
  - PRURIGO [None]
  - PYREXIA [None]
  - SKIN EXFOLIATION [None]
